FAERS Safety Report 9368689 (Version 1)
Quarter: 2013Q2

REPORT INFORMATION
  Report Type: Spontaneous
  Country: BR (occurrence: BR)
  Receive Date: 20130626
  Receipt Date: 20130626
  Transmission Date: 20140414
  Serious: Yes (Other)
  Sender: FDA-Public Use
  Company Number: BR-AMGEN-BRASP2012030766

PATIENT
  Age: 67 Year
  Sex: Female
  Weight: 79 kg

DRUGS (2)
  1. ENBREL [Suspect]
     Indication: RHEUMATOID ARTHRITIS
     Dosage: 50 MG, WEEKLY
     Route: 058
     Dates: start: 201104
  2. LOSARTAN [Concomitant]
     Dosage: 50 MG, 1X/DAY

REACTIONS (7)
  - Monoplegia [Unknown]
  - Diplegia [Unknown]
  - Walking aid user [Not Recovered/Not Resolved]
  - Guillain-Barre syndrome [Unknown]
  - Application site pain [Not Recovered/Not Resolved]
  - Application site pruritus [Not Recovered/Not Resolved]
  - Application site haematoma [Not Recovered/Not Resolved]
